FAERS Safety Report 5785976-2 (Version None)
Quarter: 2008Q2

REPORT INFORMATION
  Report Type: 
  Country: None (occurrence: None)
  Receive Date: 20080624
  Receipt Date: 20080616
  Transmission Date: 20081010
  Serious: Yes (Other)
  Sender: FDA-Public Use
  Company Number: PHBS2008US04823

PATIENT
  Age: 36 Year
  Sex: Female

DRUGS (10)
  1. OCTREOTIDE ACETATE [Suspect]
     Indication: CARCINOID SYNDROME
     Dosage: 20 MG EVERY 4 WEEKS
     Route: 030
  2. OCTREOTIDE ACETATE [Suspect]
     Dosage: 40 MG, TIW
     Route: 030
  3. OCTREOTIDE ACETATE [Suspect]
     Dosage: 30 MG, BIW
     Route: 030
  4. OCTREOTIDE ACETATE [Suspect]
     Dosage: 6-8 MG PRN
     Route: 058
  5. OCTREOTIDE ACETATE [Suspect]
     Dosage: 20 MG, BIW
     Route: 030
  6. OCTREOTIDE ACETATE [Suspect]
     Dosage: 10 MG, BIW
     Route: 030
  7. OCTREOTIDE ACETATE [Suspect]
     Dosage: 30 MG, BIW
     Route: 030
  8. OCTREOTIDE ACETATE [Suspect]
     Dosage: 20 MG, QMO
     Route: 030
  9. OCTREOTIDE ACETATE [Suspect]
     Dosage: UP TO APPROX 70 MG/MONTH
  10. CETIRIZINE HCL [Concomitant]

REACTIONS (15)
  - ATAXIA [None]
  - BRADYKINESIA [None]
  - CEREBELLAR SYNDROME [None]
  - CLUMSINESS [None]
  - DYSKINESIA [None]
  - DYSPHONIA [None]
  - FATIGUE [None]
  - GAIT DISTURBANCE [None]
  - HYPERREFLEXIA [None]
  - HYPOAESTHESIA [None]
  - HYPOKINESIA [None]
  - MUSCLE RIGIDITY [None]
  - MUSCLE SPASMS [None]
  - PARKINSONISM [None]
  - POSTURE ABNORMAL [None]
